FAERS Safety Report 17605066 (Version 1)
Quarter: 2020Q1

REPORT INFORMATION
  Report Type: Spontaneous
  Country: US (occurrence: US)
  Receive Date: 20200331
  Receipt Date: 20200331
  Transmission Date: 20200409
  Serious: No
  Sender: FDA-Public Use
  Company Number: US-GUERBET-US-20190256

PATIENT
  Age: 72 Year
  Sex: Female
  Weight: 81.6 kg

DRUGS (1)
  1. DOTAREM [Suspect]
     Active Substance: GADOTERATE MEGLUMINE
     Indication: MAGNETIC RESONANCE IMAGING
     Route: 042
     Dates: start: 20191026, end: 20191026

REACTIONS (3)
  - Pruritus [Recovered/Resolved]
  - Paraesthesia [Recovered/Resolved]
  - Erythema [Recovered/Resolved]

NARRATIVE: CASE EVENT DATE: 20191026
